FAERS Safety Report 4311331-8 (Version None)
Quarter: 2004Q1

REPORT INFORMATION
  Report Type: 
  Country: None (occurrence: None)
  Receive Date: 20040302
  Receipt Date: 20040302
  Transmission Date: 20041129
  Serious: Yes (Other)
  Sender: FDA-Public Use
  Company Number: None

PATIENT
  Age: 3 Year
  Sex: Female
  Weight: 16.3295 kg

DRUGS (1)
  1. CIPRODEX [Suspect]
     Indication: OTITIS MEDIA
     Dosage: 3 DROPS BID AURICULAR (OT
     Route: 001
     Dates: start: 20040224, end: 20040228

REACTIONS (2)
  - CRYING [None]
  - DRUG INTOLERANCE [None]
